FAERS Safety Report 7782624-7 (Version None)
Quarter: 2011Q3

REPORT INFORMATION
  Report Type: 
  Country: None (occurrence: None)
  Receive Date: 20110928
  Receipt Date: 20110922
  Transmission Date: 20111222
  Serious: Yes (Hospitalization)
  Sender: FDA-Public Use
  Company Number: DE-JNJFOC-20110909886

PATIENT
  Sex: Male

DRUGS (4)
  1. USTEKINUMAB [Suspect]
     Indication: PSORIASIS
     Route: 058
     Dates: start: 20060703
  2. USTEKINUMAB [Suspect]
     Route: 058
     Dates: start: 20110304
  3. ALLOPURINOL [Concomitant]
     Dates: start: 20040901
  4. VOCADO [Concomitant]
     Dates: start: 20101101

REACTIONS (2)
  - THORACIC VERTEBRAL FRACTURE [None]
  - PLASMACYTOMA [None]
